FAERS Safety Report 9173502 (Version 1)
Quarter: 2013Q1

REPORT INFORMATION
  Report Type: Spontaneous
  Country: US (occurrence: None)
  Receive Date: 20130318
  Receipt Date: 20130318
  Transmission Date: 20140127
  Serious: Yes (Hospitalization, Other)
  Sender: FDA-Public Use
  Company Number: AXC-2013-000091

PATIENT
  Sex: Female

DRUGS (2)
  1. MESALAMINE [Suspect]
     Indication: CROHN^S DISEASE
  2. AZATHIOPRINE [Suspect]
     Indication: CROHN^S DISEASE

REACTIONS (7)
  - Postoperative wound complication [None]
  - Wound secretion [None]
  - Anal abscess [None]
  - Gastrointestinal necrosis [None]
  - Anal fistula [None]
  - Female genital tract fistula [None]
  - Colitis [None]
